FAERS Safety Report 9530701 (Version 1)
Quarter: 2013Q3

REPORT INFORMATION
  Report Type: Spontaneous
  Country: US (occurrence: US)
  Receive Date: 20130918
  Receipt Date: 20130918
  Transmission Date: 20140515
  Serious: No
  Sender: FDA-Public Use
  Company Number: US-B.I. PHARMACEUTICALS,INC./RIDGEFIELD-2013-BI-28077BP

PATIENT
  Age: 66 Year
  Sex: Male

DRUGS (2)
  1. SPIRIVA [Suspect]
     Indication: CHRONIC OBSTRUCTIVE PULMONARY DISEASE
     Route: 055
  2. ADVAIR [Concomitant]
     Dosage: STRENGTH: 250 MCG / 50 MCG;
     Route: 055

REACTIONS (10)
  - Eye pain [Unknown]
  - Vision blurred [Unknown]
  - Headache [Unknown]
  - Influenza like illness [Unknown]
  - Respiratory rate increased [Unknown]
  - Dyspnoea [Unknown]
  - Dry throat [Unknown]
  - Throat irritation [Unknown]
  - Increased appetite [Unknown]
  - Cataract [Unknown]
